FAERS Safety Report 18847695 (Version 22)
Quarter: 2025Q1

REPORT INFORMATION
  Report Type: Report from Study
  Country: US (occurrence: US)
  Receive Date: 20210204
  Receipt Date: 20250326
  Transmission Date: 20250409
  Serious: Yes (Hospitalization, Other)
  Sender: TAKEDA
  Company Number: US-SHIRE-US201938724AA

PATIENT
  Age: 75 Year
  Sex: Female
  Weight: 48 kg

DRUGS (76)
  1. HUMAN IMMUNOGLOBULIN G [Suspect]
     Active Substance: HUMAN IMMUNOGLOBULIN G
     Indication: Immunodeficiency common variable
     Dosage: 20 GRAM, Q2WEEKS
  2. HUMAN IMMUNOGLOBULIN G [Suspect]
     Active Substance: HUMAN IMMUNOGLOBULIN G
     Indication: Primary immunodeficiency syndrome
  3. HYQVIA [Suspect]
     Active Substance: HUMAN IMMUNOGLOBULIN G\HYALURONIDASE (HUMAN RECOMBINANT)
     Indication: Primary immunodeficiency syndrome
     Dosage: 20 GRAM, Q2WEEKS
  4. ZYRTEC [Suspect]
     Active Substance: CETIRIZINE HYDROCHLORIDE
     Indication: Product used for unknown indication
  5. ACETAMINOPHEN [Concomitant]
     Active Substance: ACETAMINOPHEN
  6. DIPHENHYDRAMINE [Concomitant]
     Active Substance: DIPHENHYDRAMINE
  7. LIDOCAINE [Concomitant]
     Active Substance: LIDOCAINE
  8. EPINEPHRINE [Concomitant]
     Active Substance: EPINEPHRINE
  9. LYRICA [Concomitant]
     Active Substance: PREGABALIN
  10. DOXYCYCLINE [Concomitant]
     Active Substance: DOXYCYCLINE
  11. ERYTHROMYCIN [Concomitant]
     Active Substance: ERYTHROMYCIN
  12. LOTEMAX [Concomitant]
     Active Substance: LOTEPREDNOL ETABONATE
  13. GABAPENTIN [Concomitant]
     Active Substance: GABAPENTIN
  14. AMITRIPTYLINE [Concomitant]
     Active Substance: AMITRIPTYLINE
  15. EVISTA [Concomitant]
     Active Substance: RALOXIFENE HYDROCHLORIDE
  16. CALCITONIN SALMON [Concomitant]
     Active Substance: CALCITONIN SALMON
  17. SINGULAIR [Concomitant]
     Active Substance: MONTELUKAST SODIUM
  18. ESTRADIOL [Concomitant]
     Active Substance: ESTRADIOL
  19. DESOXIMETASONE [Concomitant]
     Active Substance: DESOXIMETASONE
  20. BENZONATATE [Concomitant]
     Active Substance: BENZONATATE
  21. TOPIRAMATE [Concomitant]
     Active Substance: TOPIRAMATE
  22. CALCIUM [Concomitant]
     Active Substance: CALCIUM
  23. PROTOPIC [Concomitant]
     Active Substance: TACROLIMUS
  24. VITAMIN D2 [Concomitant]
     Active Substance: ERGOCALCIFEROL
  25. CYCLOBENZAPRINE [Concomitant]
     Active Substance: CYCLOBENZAPRINE
  26. FLUTICASONE PROPIONATE [Concomitant]
     Active Substance: FLUTICASONE PROPIONATE
  27. CALCIUM CARBONATE [Concomitant]
     Active Substance: CALCIUM CARBONATE
  28. VITAMIN D [Concomitant]
     Active Substance: VITAMIN D NOS
  29. PROAIR HFA [Concomitant]
     Active Substance: ALBUTEROL SULFATE
  30. FORTEO [Concomitant]
     Active Substance: TERIPARATIDE
  31. DOXYCYCLINE HYCLATE [Concomitant]
     Active Substance: DOXYCYCLINE HYCLATE
  32. AUGMENTIN [Concomitant]
     Active Substance: AMOXICILLIN\CLAVULANATE POTASSIUM
  33. NEXIUM [Concomitant]
     Active Substance: ESOMEPRAZOLE MAGNESIUM
  34. PROTONIX [Concomitant]
     Active Substance: PANTOPRAZOLE SODIUM
  35. PROVENTIL HFA [Concomitant]
     Active Substance: ALBUTEROL SULFATE
  36. FLONASE [Concomitant]
     Active Substance: FLUTICASONE PROPIONATE
  37. FIORINAL [Concomitant]
     Active Substance: ASPIRIN\BUTALBITAL\CAFFEINE
  38. CORICIDIN HBP COLD AND FLU [Concomitant]
     Active Substance: ACETAMINOPHEN\CHLORPHENIRAMINE MALEATE
  39. KEFLEX [Concomitant]
     Active Substance: CEPHALEXIN
  40. FLUTICASONE [Concomitant]
     Active Substance: FLUTICASONE
  41. ATORVASTATIN CALCIUM [Concomitant]
     Active Substance: ATORVASTATIN CALCIUM
  42. RESTASIS [Concomitant]
     Active Substance: CYCLOSPORINE
  43. SYSTANE (HYPROMELLOSE 2910 (4000 MPA.S)) [Concomitant]
     Active Substance: HYPROMELLOSE 2910 (4000 MPA.S)
  44. MIRALAX [Concomitant]
     Active Substance: POLYETHYLENE GLYCOL 3350
  45. DOCUSATE SODIUM [Concomitant]
     Active Substance: DOCUSATE SODIUM
  46. TYLENOL EXTRA STRENGTH [Concomitant]
     Active Substance: ACETAMINOPHEN
  47. AZELASTINE HYDROCHLORIDE [Concomitant]
     Active Substance: AZELASTINE HYDROCHLORIDE
  48. ENTRESTO [Concomitant]
     Active Substance: SACUBITRIL\VALSARTAN
  49. DULOXETINE HYDROCHLORIDE [Concomitant]
     Active Substance: DULOXETINE HYDROCHLORIDE
  50. ERYTHROMYCIN [Concomitant]
     Active Substance: ERYTHROMYCIN
  51. PANTOPRAZOLE SODIUM [Concomitant]
     Active Substance: PANTOPRAZOLE SODIUM
  52. TACROLIMUS [Concomitant]
     Active Substance: TACROLIMUS
  53. BUTALBITAL, ASPIRIN, AND CAFFEINE [Concomitant]
     Active Substance: ASPIRIN\BUTALBITAL\CAFFEINE
  54. Calcium plus d3 [Concomitant]
  55. EPIPEN [Concomitant]
     Active Substance: EPINEPHRINE
  56. ERGOCALCIFEROL [Concomitant]
     Active Substance: ERGOCALCIFEROL
  57. CETIRIZINE HCL [Concomitant]
     Active Substance: CETIRIZINE HYDROCHLORIDE
  58. BACITRACIN [Concomitant]
     Active Substance: BACITRACIN
  59. CEPHALEXIN [Concomitant]
     Active Substance: CEPHALEXIN
  60. METOPROLOL SUCCINATE [Concomitant]
     Active Substance: METOPROLOL SUCCINATE
  61. NITROGLYCERIN [Concomitant]
     Active Substance: NITROGLYCERIN
  62. VENTOLIN HFA [Concomitant]
     Active Substance: ALBUTEROL SULFATE
  63. CALCIUM\VITAMIN D [Concomitant]
     Active Substance: CALCIUM\VITAMIN D
  64. ASPIRIN [Concomitant]
     Active Substance: ASPIRIN
  65. MUCINEX [Concomitant]
     Active Substance: GUAIFENESIN
  66. MONTELUKAST SODIUM [Concomitant]
     Active Substance: MONTELUKAST SODIUM
  67. MUPIROCIN [Concomitant]
     Active Substance: MUPIROCIN
  68. NALTREXONE HYDROCHLORIDE [Concomitant]
     Active Substance: NALTREXONE HYDROCHLORIDE
  69. DIPHENHYDRAMINE HYDROCHLORIDE [Concomitant]
     Active Substance: DIPHENHYDRAMINE HYDROCHLORIDE
  70. BUTALBITAL, ACETAMINOPHEN, AND CAFFEINE [Concomitant]
     Active Substance: ACETAMINOPHEN\BUTALBITAL\CAFFEINE
  71. RALOXIFENE [Concomitant]
     Active Substance: RALOXIFENE
  72. HYDROCORTISONE ACETATE [Concomitant]
     Active Substance: HYDROCORTISONE ACETATE
  73. RECLAST [Concomitant]
     Active Substance: ZOLEDRONIC ACID
  74. AMITRIPTYLINE HYDROCHLORIDE [Concomitant]
     Active Substance: AMITRIPTYLINE HYDROCHLORIDE
  75. CYCLOBENZAPRINE HYDROCHLORIDE [Concomitant]
     Active Substance: CYCLOBENZAPRINE HYDROCHLORIDE
  76. FISH OIL [Concomitant]
     Active Substance: FISH OIL

REACTIONS (29)
  - Pelvic fracture [Recovering/Resolving]
  - Rib fracture [Recovering/Resolving]
  - Injury [Recovering/Resolving]
  - Fall [Recovering/Resolving]
  - Neck pain [Not Recovered/Not Resolved]
  - Multiple fractures [Unknown]
  - Melatonin deficiency [Unknown]
  - Pneumothorax [Unknown]
  - Cardiomyopathy [Unknown]
  - Spinal fracture [Unknown]
  - Malignant melanoma [Unknown]
  - Cellulitis [Recovered/Resolved]
  - Pathological fracture [Unknown]
  - Gastrointestinal obstruction [Recovered/Resolved]
  - Squamous cell carcinoma of skin [Recovered/Resolved]
  - Back pain [Not Recovered/Not Resolved]
  - Product dose omission issue [Unknown]
  - Eye disorder [Unknown]
  - Drug eruption [Unknown]
  - COVID-19 [Not Recovered/Not Resolved]
  - Eye infection [Unknown]
  - Incorrect drug administration rate [Unknown]
  - Incorrect dose administered [Unknown]
  - Product use issue [Unknown]
  - Fungal infection [Unknown]
  - Localised infection [Unknown]
  - Drug hypersensitivity [Unknown]
  - Cough [Unknown]
  - Osteoporosis [Recovered/Resolved]

NARRATIVE: CASE EVENT DATE: 20190906
